FAERS Safety Report 11195439 (Version 1)
Quarter: 2015Q2

REPORT INFORMATION
  Report Type: Spontaneous
  Country: US (occurrence: None)
  Receive Date: 20150615
  Receipt Date: 20150615
  Transmission Date: 20150821
  Serious: Yes (Other)
  Sender: FDA-Public Use
  Company Number: None

PATIENT
  Age: 38 Year
  Sex: Female

DRUGS (2)
  1. PROMETHAZINE [Suspect]
     Active Substance: PROMETHAZINE\PROMETHAZINE HYDROCHLORIDE
     Indication: VERTIGO
     Dosage: 1 PILL EVERY 6 HRS OR 3 PER DAY BY MOUTH PO
     Route: 048
     Dates: start: 20150604, end: 20150606
  2. PROMETHAZINE [Suspect]
     Active Substance: PROMETHAZINE\PROMETHAZINE HYDROCHLORIDE
     Indication: NAUSEA
     Dosage: 1 PILL EVERY 6 HRS OR 3 PER DAY BY MOUTH PO
     Route: 048
     Dates: start: 20150604, end: 20150606

REACTIONS (2)
  - Drug effect decreased [None]
  - Malaise [None]

NARRATIVE: CASE EVENT DATE: 20150605
